FAERS Safety Report 6896218-9 (Version None)
Quarter: 2010Q3

REPORT INFORMATION
  Report Type: 
  Country: None (occurrence: None)
  Receive Date: 20100802
  Receipt Date: 20100726
  Transmission Date: 20110219
  Serious: Yes (Congenital Anomaly)
  Sender: FDA-Public Use
  Company Number: A0872580A

PATIENT
  Sex: Male

DRUGS (5)
  1. COMBIVIR [Suspect]
     Indication: HIV INFECTION
     Dates: start: 20060518, end: 20060823
  2. VIDEX [Suspect]
     Indication: HIV INFECTION
     Dates: start: 20060420, end: 20060518
  3. VIRACEPT [Suspect]
     Indication: HIV INFECTION
     Dates: start: 20060518, end: 20060823
  4. FERROUS SULFATE [Concomitant]
  5. SPIRAMYCIN [Concomitant]

REACTIONS (3)
  - ATRIAL SEPTAL DEFECT [None]
  - DRUG EXPOSURE DURING PREGNANCY [None]
  - VENTRICULAR SEPTAL DEFECT [None]
